FAERS Safety Report 17460751 (Version 2)
Quarter: 2020Q1

REPORT INFORMATION
  Report Type: Spontaneous
  Country: AU (occurrence: AU)
  Receive Date: 20200226
  Receipt Date: 20200303
  Transmission Date: 20200409
  Serious: Yes (Hospitalization, Other)
  Sender: FDA-Public Use
  Company Number: AU-GLAXOSMITHKLINE-AU2019APC239804

PATIENT
  Age: 55 Year
  Sex: Male

DRUGS (3)
  1. VOLTAREN RAPID [Suspect]
     Active Substance: DICLOFENAC POTASSIUM
     Indication: ANTIINFLAMMATORY THERAPY
     Dosage: 1 DF, 1D (TABLET)
     Route: 048
     Dates: end: 201911
  2. VOLTAREN RAPID [Suspect]
     Active Substance: DICLOFENAC POTASSIUM
     Indication: PAIN
  3. VOLTAREN RAPID [Suspect]
     Active Substance: DICLOFENAC POTASSIUM
     Indication: INFLAMMATION

REACTIONS (10)
  - Erythema [Recovered/Resolved]
  - Hypertension [Recovered/Resolved]
  - Vomiting [Recovered/Resolved]
  - Arrhythmia [Recovered/Resolved]
  - Immobile [Recovered/Resolved]
  - Atrial fibrillation [Recovered/Resolved]
  - Hyperhidrosis [Recovered/Resolved]
  - Ill-defined disorder [Recovered/Resolved]
  - Anaphylactic reaction [Recovered/Resolved]
  - Tremor [Recovered/Resolved]

NARRATIVE: CASE EVENT DATE: 20190703
